FAERS Safety Report 12503216 (Version 1)
Quarter: 2016Q2

REPORT INFORMATION
  Report Type: Spontaneous
  Country: DK (occurrence: DK)
  Receive Date: 20160628
  Receipt Date: 20160628
  Transmission Date: 20160815
  Serious: Yes (Other)
  Sender: FDA-Public Use
  Company Number: DK-IPSEN BIOPHARMACEUTICALS, INC.-2016-05437

PATIENT
  Age: 51 Year
  Sex: Female

DRUGS (1)
  1. DYSPORT [Suspect]
     Active Substance: ABOBOTULINUMTOXINA
     Indication: MUSCLE SPASTICITY
     Dosage: 1800 UNITS
     Route: 065
     Dates: start: 20160128, end: 20160128

REACTIONS (6)
  - Alanine aminotransferase increased [Unknown]
  - Liver disorder [Unknown]
  - Overdose [Unknown]
  - Hepatomegaly [Unknown]
  - Hepatic steatosis [Unknown]
  - Aspartate aminotransferase increased [Unknown]

NARRATIVE: CASE EVENT DATE: 201603
